FAERS Safety Report 9314056 (Version 1)
Quarter: 2013Q2

REPORT INFORMATION
  Report Type: Spontaneous
  Country: US (occurrence: None)
  Receive Date: 20130524
  Receipt Date: 20130524
  Transmission Date: 20140414
  Serious: Yes (Disabling)
  Sender: FDA-Public Use
  Company Number: None

PATIENT
  Age: 26 Year
  Sex: Female
  Weight: 88.6 kg

DRUGS (1)
  1. MIRENA BAYER [Suspect]
     Indication: CONTRACEPTION
     Dosage: REGULAR CONTINUALLY IUD
     Dates: start: 20120301, end: 20130415

REACTIONS (5)
  - Arthralgia [None]
  - Back pain [None]
  - Tendonitis [None]
  - Pain in extremity [None]
  - Arthralgia [None]
